FAERS Safety Report 9249262 (Version 2)
Quarter: 2013Q2

REPORT INFORMATION
  Report Type: Spontaneous
  Country: US (occurrence: US)
  Receive Date: 20130423
  Receipt Date: 20130513
  Transmission Date: 20140414
  Serious: No
  Sender: FDA-Public Use
  Company Number: US-PFIZER INC-2013123556

PATIENT
  Sex: Female

DRUGS (3)
  1. TOVIAZ [Suspect]
     Indication: MICTURITION URGENCY
     Dosage: 8 MG, 1X/DAY
  2. TYLENOL PM [Concomitant]
     Dosage: UNK
  3. VITAMIN B12 [Concomitant]
     Indication: MYELOPATHY
     Dosage: UNK

REACTIONS (1)
  - Drug ineffective [Unknown]
